FAERS Safety Report 23736566 (Version 2)
Quarter: 2024Q2

REPORT INFORMATION
  Report Type: Spontaneous
  Country: SE (occurrence: SE)
  Receive Date: 20240412
  Receipt Date: 20240422
  Transmission Date: 20240715
  Serious: Yes (Hospitalization)
  Sender: FDA-Public Use
  Company Number: SE-ORG100013279-013727

PATIENT
  Age: 50 Year
  Sex: Female
  Weight: 165 kg

DRUGS (11)
  1. QUETIAPINE [Suspect]
     Active Substance: QUETIAPINE
     Indication: Product used for unknown indication
     Dosage: UNK
     Route: 065
  2. LITHIUM SULFATE [Suspect]
     Active Substance: LITHIUM SULFATE
     Indication: Bipolar disorder
     Dosage: ON 24 OCT 2023 THE DOSE WAS INCREASE TO 2+0+3 TABLETS EVERY OTHER DAYAND 2X2 TABLETS PER DAY EVERY O
     Route: 048
     Dates: start: 20231024
  3. LITHIUM SULFATE [Suspect]
     Active Substance: LITHIUM SULFATE
     Dosage: 1 DOSAGE FORM, BID, 1 TABLET TWICE DAILY
     Route: 048
     Dates: start: 20230815
  4. LITHIUM SULFATE [Suspect]
     Active Substance: LITHIUM SULFATE
     Dosage: ON 01 SEP 2023 THE DOSE WAS CHANGED TO 2 X 2 DAILY WITH RE-SAMPLING AFTER ONE WEEK
     Route: 048
     Dates: start: 20230901
  5. LITHIUM SULFATE [Suspect]
     Active Substance: LITHIUM SULFATE
     Dosage: 3 DOSAGE FORM, TID, ONE TABLET IN THE MORNING AND TWO TABLETS IN THEEVENING
     Route: 048
     Dates: start: 20231212, end: 20231217
  6. LAMOTRIGINE [Suspect]
     Active Substance: LAMOTRIGINE
     Indication: Product used for unknown indication
     Dosage: UNK
     Route: 065
  7. ZOPICLONE [Concomitant]
     Active Substance: ZOPICLONE
     Indication: Sleep disorder
     Dosage: 1 AS NECESSARY (0.5 -1 IF NECESSARY AT NIGHT)
     Route: 048
  8. ZOPICLONE [Concomitant]
     Active Substance: ZOPICLONE
     Dosage: UNK
     Route: 065
  9. Betolvex [Concomitant]
     Indication: Product used for unknown indication
     Dosage: 1 MILLIGRAM, QD (1 IN THE MORNING)
     Route: 048
  10. CHOLECALCIFEROL [Concomitant]
     Active Substance: CHOLECALCIFEROL
     Indication: Product used for unknown indication
     Dosage: 1600 INTERNATIONAL UNIT, QD (2 IN MORNING)
     Route: 048
     Dates: start: 20130301
  11. FOLSYRA EVOLAN [Concomitant]
     Indication: Product used for unknown indication
     Dosage: 5 MILLIGRAM, QD (1 IN THE MORNING)
     Route: 065

REACTIONS (18)
  - Hemiparesis [Recovered/Resolved]
  - Neurological symptom [Unknown]
  - Speech disorder [Recovered/Resolved]
  - Nausea [Recovered/Resolved]
  - Diplopia [Not Recovered/Not Resolved]
  - Gait disturbance [Recovered/Resolved]
  - Toxicity to various agents [Recovered/Resolved]
  - Antipsychotic drug level increased [Not Recovered/Not Resolved]
  - Vertigo [Recovered/Resolved]
  - Tunnel vision [Recovered/Resolved]
  - Dysphonia [Recovered/Resolved]
  - Mastication disorder [Recovered/Resolved]
  - Abdominal pain [Recovered/Resolved]
  - Diarrhoea [Recovered/Resolved]
  - Dyskinesia [Recovered/Resolved]
  - Dysphagia [Recovered/Resolved]
  - Dizziness [Recovered/Resolved]
  - Vomiting [Recovered/Resolved]

NARRATIVE: CASE EVENT DATE: 20231125
